FAERS Safety Report 6992601-1 (Version None)
Quarter: 2010Q3

REPORT INFORMATION
  Report Type: 
  Country: None (occurrence: None)
  Receive Date: 20100917
  Receipt Date: 20100913
  Transmission Date: 20110219
  Serious: Yes (Hospitalization)
  Sender: FDA-Public Use
  Company Number: US-EISAI INC.-E2020-07459-SPO-US

PATIENT
  Sex: Female

DRUGS (1)
  1. ARICEPT [Suspect]
     Dosage: UNKNOWN
     Route: 048
     Dates: end: 20100101

REACTIONS (3)
  - DEMENTIA [None]
  - DRUG ADMINISTRATION ERROR [None]
  - NAUSEA [None]
